FAERS Safety Report 10714646 (Version 1)
Quarter: 2015Q1

REPORT INFORMATION
  Report Type: Report from Study
  Country: JP (occurrence: JP)
  Receive Date: 20150115
  Receipt Date: 20150115
  Transmission Date: 20150721
  Serious: Yes (Hospitalization)
  Sender: FDA-Public Use
  Company Number: JP-BAYER-2014-166123

PATIENT
  Age: 79 Year
  Sex: Male
  Weight: 57 kg

DRUGS (11)
  1. RADIUM-223 DICHLORIDE [Suspect]
     Active Substance: RADIUM RA-223 DICHLORIDE
     Indication: PROSTATE CANCER STAGE IV
     Dosage: 50KBQ/KG
     Route: 042
     Dates: start: 20140523, end: 20140523
  2. RADIUM-223 DICHLORIDE [Suspect]
     Active Substance: RADIUM RA-223 DICHLORIDE
     Indication: PROSTATE CANCER STAGE IV
     Dosage: 50KBQ/KG
     Route: 042
     Dates: start: 20140912, end: 20140912
  3. JUZENTAIHOTO [Concomitant]
     Indication: FATIGUE
     Dosage: 2.5 G, TID
     Route: 048
     Dates: start: 20131211
  4. RADIUM-223 DICHLORIDE [Suspect]
     Active Substance: RADIUM RA-223 DICHLORIDE
     Indication: METASTASES TO BONE
     Dosage: 50KBQ/KG
     Route: 042
     Dates: start: 20140620, end: 20140620
  5. RADIUM-223 DICHLORIDE [Suspect]
     Active Substance: RADIUM RA-223 DICHLORIDE
     Indication: PROSTATE CANCER STAGE IV
     Dosage: 50KBQ/KG
     Route: 042
     Dates: start: 20140815, end: 20140815
  6. NEXIUM [Concomitant]
     Active Substance: ESOMEPRAZOLE MAGNESIUM
     Indication: GASTRITIS PROPHYLAXIS
     Dosage: 10 MG, QD
     Route: 048
     Dates: start: 20130723
  7. RADIUM-223 DICHLORIDE [Suspect]
     Active Substance: RADIUM RA-223 DICHLORIDE
     Indication: PROSTATE CANCER STAGE IV
     Dosage: 50KBQ/KG
     Route: 042
     Dates: start: 20140718, end: 20140718
  8. AZUNOL [SODIUM GUALENATE] [Concomitant]
     Indication: STOMATITIS
     Dosage: UNK
     Route: 002
     Dates: start: 20131030
  9. FERROUS SODIUM CITRATE [Concomitant]
     Indication: ANAEMIA
     Dosage: 100 MG, QD
     Route: 048
     Dates: start: 20141010
  10. CELECOXIB. [Concomitant]
     Active Substance: CELECOXIB
     Indication: BONE PAIN
     Dosage: 100 MG, BID
     Route: 048
     Dates: start: 20140205
  11. ENZALUTAMIDE [Concomitant]
     Active Substance: ENZALUTAMIDE
     Dosage: UNK
     Route: 048
     Dates: start: 20141017

REACTIONS (4)
  - Anaemia [Recovering/Resolving]
  - Anaemia [None]
  - Anaemia [Recovering/Resolving]
  - Anaemia [Not Recovered/Not Resolved]

NARRATIVE: CASE EVENT DATE: 20141107
